FAERS Safety Report 4974805-2 (Version None)
Quarter: 2006Q2

REPORT INFORMATION
  Report Type: 
  Country: None (occurrence: None)
  Receive Date: 20060410
  Receipt Date: 20060323
  Transmission Date: 20061013
  Serious: Yes (Death)
  Sender: FDA-Public Use
  Company Number: 223566

PATIENT
  Age: 67 Year
  Sex: Female

DRUGS (8)
  1. AVASTIN [Suspect]
     Indication: COLON CANCER
     Dosage: 560 MG, Q3W, INTRAVENOUS
     Route: 042
     Dates: start: 20050704, end: 20051228
  2. OXALIPLATIN (OXALIPLATIN) [Suspect]
     Indication: COLON CANCER
     Dosage: 165 MG, Q2W, INTRAVENOUS
     Route: 042
     Dates: start: 20050704, end: 20051228
  3. LEUCOVORIN CALCIUM [Suspect]
     Indication: COLON CANCER
     Dosage: 390 MG, Q2W, INTRAVENOUS
     Route: 042
     Dates: start: 20050704, end: 20051228
  4. FLUOROURACIL [Suspect]
     Indication: COLON CANCER
     Dosage: SEE IMAGE
     Dates: start: 20050704, end: 20051228
  5. GEMFIBROZIL [Concomitant]
  6. METFORMIN [Concomitant]
  7. RABEPRAZOLE SODIUM [Concomitant]
  8. MYLANTA (ALUMINUM HYDROXIDE, MAGNESIUM HYDROXIDE, SIMETHICONE) [Concomitant]

REACTIONS (4)
  - CHEST DISCOMFORT [None]
  - CHEST PAIN [None]
  - DYSPEPSIA [None]
  - OESOPHAGITIS [None]
